FAERS Safety Report 7770100-7 (Version None)
Quarter: 2011Q3

REPORT INFORMATION
  Report Type: 
  Country: None (occurrence: None)
  Receive Date: 20110922
  Receipt Date: 20110919
  Transmission Date: 20111222
  Serious: Yes (Other)
  Sender: FDA-Public Use
  Company Number: BR-ABBOTT-10P-020-0693607-00

PATIENT
  Sex: Male
  Weight: 83 kg

DRUGS (3)
  1. UNKNOWN MEDICATION [Concomitant]
     Indication: PAIN
  2. HUMIRA [Suspect]
  3. HUMIRA [Suspect]
     Indication: PSORIATIC ARTHROPATHY
     Route: 058
     Dates: start: 20100316

REACTIONS (12)
  - CHEST PAIN [None]
  - EYE SWELLING [None]
  - TREMOR [None]
  - PHARYNGEAL HAEMORRHAGE [None]
  - EYE DISORDER [None]
  - AGITATION [None]
  - PHARYNGEAL INFLAMMATION [None]
  - EYE PAIN [None]
  - DYSPHAGIA [None]
  - HEADACHE [None]
  - OCULAR HYPERAEMIA [None]
  - EPISTAXIS [None]
